FAERS Safety Report 23796535 (Version 1)
Quarter: 2024Q2

REPORT INFORMATION
  Report Type: Spontaneous
  Country: ZA (occurrence: None)
  Receive Date: 20240430
  Receipt Date: 20240430
  Transmission Date: 20240715
  Serious: Yes (Hospitalization)
  Sender: FDA-Public Use
  Company Number: 2024A097371

PATIENT
  Age: 62 Year
  Sex: Male

DRUGS (8)
  1. BUDESONIDE\FORMOTEROL [Suspect]
     Active Substance: BUDESONIDE\FORMOTEROL
     Dosage: 120 DOSE 160/4.5 MCG, UNKNOWN UNKNOWN
     Route: 055
  2. ACETYLCYSTEINE [Concomitant]
     Active Substance: ACETYLCYSTEINE
     Dosage: 200.0MG UNKNOWN
  3. ETORICOXIB [Concomitant]
     Active Substance: ETORICOXIB
  4. METFORMIN HYDROCHLORIDE [Concomitant]
     Active Substance: METFORMIN HYDROCHLORIDE
  5. BEZAFIBRATE [Concomitant]
     Active Substance: BEZAFIBRATE
  6. VALSARTAN [Concomitant]
     Active Substance: VALSARTAN
  7. SULFACETAMIDE [Concomitant]
     Active Substance: SULFACETAMIDE
  8. INSULIN ASPART [Concomitant]
     Active Substance: INSULIN ASPART
     Dosage: 30 FLEXPEN 100 IU

REACTIONS (1)
  - COVID-19 [Unknown]
